FAERS Safety Report 7748409-2 (Version None)
Quarter: 2011Q3

REPORT INFORMATION
  Report Type: 
  Country: None (occurrence: None)
  Receive Date: 20110913
  Receipt Date: 20110909
  Transmission Date: 20111222
  Serious: Yes (Hospitalization, Other)
  Sender: FDA-Public Use
  Company Number: FR-BRISTOL-MYERS SQUIBB COMPANY-16044117

PATIENT
  Age: 47 Year
  Sex: Female

DRUGS (7)
  1. LEXOMIL [Suspect]
     Dosage: 1 DF= 30 TABLETS FORMU: LEXOMIL ROCHE QUADRISCORED TABLET , 1 BOX
     Dates: start: 20101212
  2. ABILIFY [Suspect]
     Dosage: 1 DF= 21 TABS
     Route: 048
     Dates: start: 20101212
  3. ZOPICLONE [Suspect]
     Dosage: 1 DF= 14 TABS
     Route: 048
     Dates: start: 20101212
  4. DISULFIRAM [Concomitant]
     Dosage: TRADE:  ESPERAL
  5. ANAFRANIL [Suspect]
     Dosage: FORMULATION:75 FILM-COATED TABLETS
     Route: 048
     Dates: start: 20101212
  6. LAMOTRIGINE [Suspect]
     Dosage: 1 DF= 14 TABS
     Route: 048
     Dates: start: 20101212
  7. SULFARLEM [Concomitant]

REACTIONS (3)
  - SOMNOLENCE [None]
  - OVERDOSE [None]
  - DRUG LEVEL INCREASED [None]
